FAERS Safety Report 6581105-6 (Version None)
Quarter: 2010Q1

REPORT INFORMATION
  Report Type: 
  Country: None (occurrence: None)
  Receive Date: 20100215
  Receipt Date: 20100204
  Transmission Date: 20100710
  Serious: Yes (Other)
  Sender: FDA-Public Use
  Company Number: PHHY2009BR45623

PATIENT
  Age: 10 Year
  Sex: Male
  Weight: 50 kg

DRUGS (4)
  1. RITALIN [Suspect]
     Indication: ATTENTION DEFICIT/HYPERACTIVITY DISORDER
     Dosage: 1 DF, BID
     Route: 048
  2. RITALIN [Suspect]
     Dosage: 1 DF, BID
     Route: 048
  3. RISPERIDONE [Concomitant]
     Dosage: 0.5 DF DAILY
     Dates: start: 20080101
  4. RISPERIDONE [Concomitant]
     Dosage: 1 DF DAILY

REACTIONS (6)
  - AGGRESSION [None]
  - DRUG INEFFECTIVE [None]
  - HEAD CIRCUMFERENCE ABNORMAL [None]
  - HYPERPHAGIA [None]
  - OBESITY [None]
  - WEIGHT INCREASED [None]
